FAERS Safety Report 5662545-6 (Version None)
Quarter: 2008Q1

REPORT INFORMATION
  Report Type: 
  Country: None (occurrence: None)
  Receive Date: 20080220
  Receipt Date: 20070515
  Transmission Date: 20080703
  Serious: Yes (Hospitalization, Disabling)
  Sender: FDA-Public Use
  Company Number: MK-6034591

PATIENT
  Age: 81 Year
  Sex: Female

DRUGS (6)
  1. LOVASTATIN [Suspect]
     Indication: BLOOD CHOLESTEROL INCREASED
     Dosage: ORAL
     Route: 048
  2. SIMVASTATIN [Suspect]
     Indication: BLOOD CHOLESTEROL INCREASED
     Dates: start: 20061201
  3. WARFARIN (CON.) [Concomitant]
  4. WARFARIN (CON.) [Concomitant]
  5. CALCIUM (CON.) [Concomitant]
  6. MULTIVITAMINS (CON.) [Concomitant]

REACTIONS (1)
  - PARALYSIS [None]
